FAERS Safety Report 9048995 (Version 1)
Quarter: 2013Q1

REPORT INFORMATION
  Report Type: Spontaneous
  Country: JP (occurrence: None)
  Receive Date: 20130117
  Receipt Date: 20130117
  Transmission Date: 20140127
  Serious: Yes (Other)
  Sender: FDA-Public Use
  Company Number: TCI2013A00108

PATIENT
  Age: 47 Year
  Sex: Female

DRUGS (1)
  1. LAMPION PACK (LANSOPRAZOLE, AMOXICILLIN, METRONIDAZOLE) [Suspect]
     Route: 048
     Dates: start: 201105, end: 201106

REACTIONS (1)
  - Drug-induced liver injury [None]
